FAERS Safety Report 9315044 (Version 3)
Quarter: 2013Q3

REPORT INFORMATION
  Report Type: Spontaneous
  Country: JP (occurrence: JP)
  Receive Date: 20130529
  Receipt Date: 20130805
  Transmission Date: 20140515
  Serious: Yes (Hospitalization)
  Sender: FDA-Public Use
  Company Number: JP-ROCHE-1228580

PATIENT
  Age: 93 Year
  Sex: Female
  Weight: 30 kg

DRUGS (7)
  1. TAMIFLU [Suspect]
     Indication: INFLUENZA
     Route: 048
     Dates: start: 20121207, end: 20121210
  2. LANSOPRAZOLE [Concomitant]
     Route: 048
  3. SULPIRIDE [Concomitant]
     Route: 048
  4. AMLODIPINE [Concomitant]
     Route: 048
  5. GASMOTIN [Concomitant]
     Route: 048
  6. NICORANDIL [Concomitant]
     Route: 048
  7. LASIX [Concomitant]
     Route: 048

REACTIONS (7)
  - Convulsion [Recovered/Resolved]
  - Hypoxia [Recovered/Resolved]
  - Vomiting [Recovered/Resolved]
  - Diarrhoea [Recovered/Resolved]
  - Hypothermia [Recovered/Resolved]
  - Productive cough [Recovered/Resolved]
  - Nausea [Recovered/Resolved]
